FAERS Safety Report 8482795 (Version 8)
Quarter: 2013Q3

REPORT INFORMATION
  Report Type: Spontaneous
  Country: US (occurrence: US)
  Receive Date: 20120329
  Receipt Date: 20130718
  Transmission Date: 20140515
  Serious: Yes (Hospitalization, Disabling, Other)
  Sender: FDA-Public Use
  Company Number: US-009507513-1203USA03325

PATIENT
  Sex: Female
  Weight: 59.87 kg

DRUGS (9)
  1. FOSAMAX [Suspect]
     Indication: OSTEOPOROSIS
     Dosage: UNK
     Route: 048
     Dates: start: 1996, end: 20080501
  2. FOSAMAX [Suspect]
     Indication: OSTEOPENIA
     Dosage: 10 MG, QD
     Route: 048
     Dates: start: 19980518
  3. FOSAMAX [Suspect]
     Dosage: 70 MG, QW
     Route: 048
     Dates: start: 200211, end: 200805
  4. FOSAMAX [Suspect]
     Indication: OSTEOPOROSIS
     Dosage: 10 MG, QD
     Route: 048
     Dates: start: 19980518
  5. FOSAMAX [Suspect]
     Indication: OSTEOPENIA
  6. FOSAMAX D [Suspect]
     Indication: OSTEOPOROSIS
     Dosage: UNK
     Route: 048
     Dates: start: 1996, end: 2008
  7. FOSAMAX D [Suspect]
     Indication: OSTEOPENIA
  8. FOSAMAX [Suspect]
     Indication: OSTEOPOROSIS
     Dosage: 70 MG, QW
     Route: 048
     Dates: start: 200211, end: 200805
  9. PREMARIN [Concomitant]
     Indication: HORMONE REPLACEMENT THERAPY
     Dosage: UNK
     Dates: start: 1990, end: 1999

REACTIONS (85)
  - Osteoporosis [Unknown]
  - Femur fracture [Unknown]
  - Low turnover osteopathy [Unknown]
  - Pancreatitis acute [Unknown]
  - Haemorrhage [Unknown]
  - Cholecystitis acute [Unknown]
  - Fracture [Unknown]
  - Fracture delayed union [Not Recovered/Not Resolved]
  - Systemic lupus erythematosus [Not Recovered/Not Resolved]
  - Abscess soft tissue [Unknown]
  - Osteomyelitis [Unknown]
  - Soft tissue infection [Unknown]
  - Cellulitis [Unknown]
  - Femur fracture [Unknown]
  - Abscess soft tissue [Unknown]
  - Iron deficiency [Unknown]
  - Wound infection staphylococcal [Unknown]
  - Enterococcal infection [Unknown]
  - Anaemia postoperative [Unknown]
  - Infection [Unknown]
  - Device failure [Unknown]
  - Femur fracture [Unknown]
  - Pneumonia [Recovering/Resolving]
  - Hypothyroidism [Not Recovered/Not Resolved]
  - Cellulitis [Unknown]
  - Device defective [Unknown]
  - Asthenia [Recovering/Resolving]
  - Arthralgia [Unknown]
  - Arthralgia [Unknown]
  - Femur fracture [Unknown]
  - Femur fracture [Unknown]
  - Vitamin B12 deficiency [Unknown]
  - Polyarthritis [Unknown]
  - Incision site infection [Unknown]
  - Haemorrhoids [Unknown]
  - Cataract [Unknown]
  - Kyphosis [Unknown]
  - Cardiac murmur [Unknown]
  - Candida infection [Unknown]
  - Lumbar vertebral fracture [Unknown]
  - Foot fracture [Unknown]
  - Pulmonary granuloma [Not Recovered/Not Resolved]
  - Urinary tract infection [Unknown]
  - Diverticulum [Unknown]
  - Skeletal injury [Unknown]
  - Depression [Unknown]
  - Fall [Unknown]
  - Urinary incontinence [Unknown]
  - Influenza like illness [Unknown]
  - Adverse drug reaction [Unknown]
  - Gout [Unknown]
  - Infection [Unknown]
  - Tendonitis [Unknown]
  - Adverse drug reaction [Unknown]
  - Undifferentiated connective tissue disease [Unknown]
  - Stress fracture [Unknown]
  - Vaginal infection [Unknown]
  - Hand fracture [Unknown]
  - Adverse drug reaction [Unknown]
  - Fall [Unknown]
  - International normalised ratio increased [Unknown]
  - Leukopenia [Unknown]
  - Electrolyte imbalance [Unknown]
  - Antibiotic level above therapeutic [Unknown]
  - Haemorrhage [Unknown]
  - Foot fracture [Unknown]
  - Hypertension [Unknown]
  - Tooth extraction [Unknown]
  - Tooth extraction [Unknown]
  - Peptic ulcer [Unknown]
  - Vitamin D deficiency [Unknown]
  - Malabsorption [Unknown]
  - Calcium deficiency [Unknown]
  - Nausea [Unknown]
  - Gastrooesophageal reflux disease [Unknown]
  - Headache [Unknown]
  - Alopecia [Unknown]
  - Oesophagitis [Unknown]
  - Muscle spasms [Unknown]
  - Urticaria [Unknown]
  - Arthralgia [Not Recovered/Not Resolved]
  - Musculoskeletal pain [Unknown]
  - Vomiting [Unknown]
  - Rash [Unknown]
  - Diarrhoea [Recovered/Resolved]
